FAERS Safety Report 20832897 (Version 1)
Quarter: 2022Q2

REPORT INFORMATION
  Report Type: 
  Country: None (occurrence: None)
  Receive Date: 20220516
  Receipt Date: 20220516
  Transmission Date: 20220721
  Serious: No
  Sender: FDA-Public Use
  Company Number: ES-ROCHE-3093646

PATIENT

DRUGS (16)
  1. RITUXIMAB [Suspect]
     Active Substance: RITUXIMAB
  2. DOXORUBICIN HYDROCHLORIDE [Suspect]
     Active Substance: DOXORUBICIN HYDROCHLORIDE
  3. VINCRISTINE [Suspect]
     Active Substance: VINCRISTINE
  4. CYCLOPHOSPHAMIDE [Suspect]
     Active Substance: CYCLOPHOSPHAMIDE
  5. PREDNISONE [Suspect]
     Active Substance: PREDNISONE
  6. IFOSFAMIDE [Concomitant]
     Active Substance: IFOSFAMIDE
  7. CARBOPLATIN [Concomitant]
     Active Substance: CARBOPLATIN
  8. ETOPOSIDE [Concomitant]
     Active Substance: ETOPOSIDE
  9. TENOFOVIR DISOPROXIL FUMARATE [Concomitant]
     Active Substance: TENOFOVIR DISOPROXIL FUMARATE
  10. EMTRICITABINE [Concomitant]
     Active Substance: EMTRICITABINE
  11. LOPINAVIR [Concomitant]
     Active Substance: LOPINAVIR
  12. RITONAVIR [Concomitant]
     Active Substance: RITONAVIR
  13. REMDESIVIR [Concomitant]
     Active Substance: REMDESIVIR
  14. POLATUZUMAB VEDOTIN [Concomitant]
     Active Substance: POLATUZUMAB VEDOTIN
  15. BENDAMUSTINE [Concomitant]
     Active Substance: BENDAMUSTINE
  16. SOTROVIMAB [Concomitant]
     Active Substance: SOTROVIMAB

REACTIONS (2)
  - COVID-19 [None]
  - Pneumonia [None]

NARRATIVE: CASE EVENT DATE: 20210527
